FAERS Safety Report 14852161 (Version 1)
Quarter: 2018Q2

REPORT INFORMATION
  Report Type: Spontaneous
  Country: US (occurrence: US)
  Receive Date: 20180419
  Receipt Date: 20180419
  Transmission Date: 20180711
  Serious: Yes (Disabling, Other)
  Sender: FDA-Public Use
  Company Number: None

PATIENT
  Age: 4 Year
  Sex: Male

DRUGS (2)
  1. MIRALAX [Suspect]
     Active Substance: POLYETHYLENE GLYCOL 3350
     Indication: CONSTIPATION
     Dosage: ?          QUANTITY:1 QUARTER CAP FULL;?
     Route: 048
  2. LACTULOSE. [Concomitant]
     Active Substance: LACTULOSE

REACTIONS (5)
  - Mood altered [None]
  - Anger [None]
  - Depression [None]
  - Personality change [None]
  - Anxiety [None]

NARRATIVE: CASE EVENT DATE: 20141015
